FAERS Safety Report 4353683-9 (Version None)
Quarter: 2004Q2

REPORT INFORMATION
  Report Type: 
  Country: None (occurrence: None)
  Receive Date: 20040430
  Receipt Date: 20040416
  Transmission Date: 20050107
  Serious: Yes (Hospitalization, Other)
  Sender: FDA-Public Use
  Company Number: 2004-0006928

PATIENT
  Age: 53 Year
  Sex: Male
  Weight: 73 kg

DRUGS (10)
  1. VIREAD [Suspect]
     Indication: HIV INFECTION
     Dosage: 300 MG, 1 IN 1 D, ORAL
     Route: 048
     Dates: start: 20030402, end: 20040316
  2. ENFUVIRTIDE (ENFUVIRTIDE) (90 MILLIGRAM, INJECTION) [Suspect]
     Indication: HIV INFECTION
     Dosage: 90 MG, 2 IN 1 D, SUBCUTANEOUS
     Route: 058
     Dates: start: 20030402, end: 20040316
  3. MCP DROPS [Concomitant]
  4. ALLOPURINOL TAB [Concomitant]
  5. KALETRA [Concomitant]
  6. TIPRANAVIR [Concomitant]
  7. RITONAVIR [Concomitant]
  8. EPIVIR [Concomitant]
  9. CAPTOPRIL [Concomitant]
  10. VOLTAREN [Concomitant]

REACTIONS (4)
  - DIALYSIS [None]
  - DRUG TOXICITY [None]
  - NEPHRITIS INTERSTITIAL [None]
  - RENAL FAILURE ACUTE [None]
